FAERS Safety Report 18861359 (Version 3)
Quarter: 2021Q1

REPORT INFORMATION
  Report Type: Spontaneous
  Country: ES (occurrence: ES)
  Receive Date: 20210208
  Receipt Date: 20210309
  Transmission Date: 20210420
  Serious: Yes (Hospitalization)
  Sender: FDA-Public Use
  Company Number: ES-AUROBINDO-AUR-APL-2021-004863

PATIENT
  Age: 13 Year

DRUGS (2)
  1. IBUPROFEN 400 MG FILM COATED TABLETS [Suspect]
     Active Substance: IBUPROFEN SODIUM
     Indication: MUSCULOSKELETAL PAIN
     Dosage: 400 MILLIGRAM, ONCE A DAY
     Route: 048
  2. IBUPROFEN 400 MG FILM COATED TABLETS [Suspect]
     Active Substance: IBUPROFEN SODIUM
     Indication: ODYNOPHAGIA
     Dosage: 400 MILLIGRAM, ONCE A DAY
     Route: 065

REACTIONS (3)
  - Dyspnoea [Recovered/Resolved]
  - Eyelid oedema [Recovered/Resolved]
  - Asthma [Recovered/Resolved]
